FAERS Safety Report 8568046-X (Version None)
Quarter: 2012Q3

REPORT INFORMATION
  Report Type: 
  Country: None (occurrence: None)
  Receive Date: 20120803
  Receipt Date: 20120727
  Transmission Date: 20120928
  Serious: Yes (Other)
  Sender: FDA-Public Use
  Company Number: PHHY2012CA014060

PATIENT
  Sex: Female

DRUGS (1)
  1. GILENYA [Suspect]
     Indication: RELAPSING-REMITTING MULTIPLE SCLEROSIS
     Dosage: 0.5 MG, DAILY
     Route: 048
     Dates: start: 20120213

REACTIONS (12)
  - AGITATION [None]
  - BRONCHITIS [None]
  - SINUSITIS [None]
  - VERTIGO [None]
  - MOUTH ULCERATION [None]
  - ANXIETY [None]
  - NAUSEA [None]
  - DEJA VU [None]
  - ORAL PUSTULE [None]
  - HEART RATE DECREASED [None]
  - DEREALISATION [None]
  - NASOPHARYNGITIS [None]
